FAERS Safety Report 8485113-X (Version None)
Quarter: 2012Q3

REPORT INFORMATION
  Report Type: 
  Country: None (occurrence: None)
  Receive Date: 20120703
  Receipt Date: 20120622
  Transmission Date: 20120928
  Serious: Yes (Death, Hospitalization)
  Sender: FDA-Public Use
  Company Number: US-PFIZER INC-2012142770

PATIENT
  Sex: Male
  Weight: 81.7 kg

DRUGS (11)
  1. VICODIN [Concomitant]
     Dosage: UNK
     Dates: start: 20111101
  2. PLAVIX [Concomitant]
     Indication: THROMBOSIS PROPHYLAXIS
     Dosage: UNK
     Dates: start: 20101011
  3. CRESTOR [Concomitant]
     Dosage: UNK
     Dates: start: 20101029
  4. TYLENOL PM [Concomitant]
     Dosage: UNK
     Dates: start: 20120506
  5. ZESTRIL [Concomitant]
     Dosage: UNK
     Dates: start: 20110516
  6. COREG [Concomitant]
     Dosage: UNK
     Dates: start: 20101020
  7. DOXORUBICIN HCL [Suspect]
     Indication: ANGIOSARCOMA METASTATIC
     Dosage: UNK
     Route: 042
     Dates: start: 20120312, end: 20120409
  8. PDGFRA [Suspect]
     Indication: ANGIOSARCOMA METASTATIC
     Dosage: 1224 MG, UNK
     Route: 042
     Dates: start: 20120521, end: 20120521
  9. HYDROCHLOROTHIAZIDE [Concomitant]
     Dosage: UNK
     Dates: start: 20101029
  10. ACETAMINOPHEN [Concomitant]
     Dosage: UNK
     Dates: start: 20120506
  11. ACIPHEX [Concomitant]
     Dosage: UNK
     Dates: start: 20110418

REACTIONS (1)
  - CARDIAC ARREST [None]
